FAERS Safety Report 8875382 (Version 2)
Quarter: 2012Q4

REPORT INFORMATION
  Report Type: 
  Country: US (occurrence: US)
  Receive Date: 20121023
  Receipt Date: 20121128
  Transmission Date: 20130627
  Serious: No
  Sender: FDA-Public Use
  Company Number: US-VERTEX PHARMACEUTICAL INC.-2012-023129

PATIENT
  Sex: Male

DRUGS (4)
  1. VX-950 (TELAPREVIR) [Suspect]
     Indication: HEPATITIS C
     Dosage: 750 mg, tid
     Route: 048
     Dates: start: 20121005
  2. RIBASPHERE [Concomitant]
     Indication: HEPATITIS C
     Dosage: 600 mg in am/400 mg in pm
     Route: 048
     Dates: start: 20121005
  3. PEGASYS [Concomitant]
     Indication: HEPATITIS C
     Dosage: 180 ?g, qw
     Route: 058
     Dates: start: 20121005
  4. PEGASYS [Concomitant]
     Dosage: 135 ?g, qw
     Route: 058

REACTIONS (6)
  - Vertigo [Unknown]
  - White blood cell count decreased [Unknown]
  - Rash [Unknown]
  - Anaemia [Unknown]
  - Platelet count decreased [Unknown]
  - Anorectal discomfort [Unknown]
